FAERS Safety Report 13703195 (Version 2)
Quarter: 2017Q3

REPORT INFORMATION
  Report Type: Spontaneous
  Country: ID (occurrence: ID)
  Receive Date: 20170629
  Receipt Date: 20170707
  Transmission Date: 20171127
  Serious: Yes (Death, Hospitalization)
  Sender: FDA-Public Use
  Company Number: ID-BAYER-2017-124073

PATIENT
  Age: 62 Year
  Sex: Male

DRUGS (2)
  1. ULTRAVIST [Suspect]
     Active Substance: IOPROMIDE
     Indication: ARTERIOGRAM CORONARY
     Dosage: 150 ML, ONCE
  2. ULTRAVIST [Suspect]
     Active Substance: IOPROMIDE
     Indication: ACUTE MYOCARDIAL INFARCTION

REACTIONS (5)
  - Aspartate aminotransferase increased [Fatal]
  - Nephropathy toxic [Fatal]
  - Hypotension [Fatal]
  - Liver injury [Fatal]
  - Alanine aminotransferase increased [Fatal]
